FAERS Safety Report 12321690 (Version 1)
Quarter: 2016Q2

REPORT INFORMATION
  Report Type: Spontaneous
  Country: US (occurrence: None)
  Receive Date: 20160429
  Receipt Date: 20160429
  Transmission Date: 20160815
  Serious: No
  Sender: FDA-Public Use
  Company Number: None

PATIENT
  Age: 55 Year
  Sex: Male
  Weight: 54.43 kg

DRUGS (1)
  1. ASTHMANEFRIN [Suspect]
     Active Substance: RACEPINEPHRINE HYDROCHLORIDE
     Indication: ASTHMA
     Dosage: AS NEEDED APPLIED TO A SURFACE, USUALLY THE SKIN
     Dates: start: 20160426, end: 20160427

REACTIONS (2)
  - Back pain [None]
  - Renal pain [None]

NARRATIVE: CASE EVENT DATE: 20160426
